FAERS Safety Report 10493788 (Version 2)
Quarter: 2014Q4

REPORT INFORMATION
  Report Type: Spontaneous
  Country: GB (occurrence: GB)
  Receive Date: 20141002
  Receipt Date: 20141105
  Transmission Date: 20150528
  Serious: Yes (Hospitalization)
  Sender: FDA-Public Use
  Company Number: PHHY2014GB127743

PATIENT
  Age: 67 Year
  Sex: Female
  Weight: 95 kg

DRUGS (17)
  1. LANSOPRAZOLE. [Concomitant]
     Active Substance: LANSOPRAZOLE
     Dosage: 30 MG, QD
  2. TIOTROPIUM BROMIDE [Concomitant]
     Active Substance: TIOTROPIUM BROMIDE
     Dosage: 18 UG, QD
  3. WARFARIN [Concomitant]
     Active Substance: WARFARIN
  4. COCODAMOL [Concomitant]
     Active Substance: ACETAMINOPHEN\CODEINE PHOSPHATE
     Dosage: 30/500 MG ONE OR TWO FOUR TIMES DAILY
  5. AZITHROMYCIN [Suspect]
     Active Substance: AZITHROMYCIN ANHYDROUS
     Indication: CHRONIC OBSTRUCTIVE PULMONARY DISEASE
     Dosage: 250 MG, QD
     Route: 048
     Dates: start: 20140819, end: 20140904
  6. AMLODIPINE [Concomitant]
     Active Substance: AMLODIPINE BESYLATE
     Dosage: 5 MG, QD
  7. CARBOCISTEINE [Concomitant]
     Active Substance: CARBOCYSTEINE
     Dosage: 750 MG, TID
     Route: 048
  8. METFORMIN [Concomitant]
     Active Substance: METFORMIN HYDROCHLORIDE
     Indication: DIABETES MELLITUS
     Dosage: 2 G, QD
  9. METOCLOPRAMIDE. [Concomitant]
     Active Substance: METOCLOPRAMIDE
     Dosage: 10 MG, TID
  10. SERETIDE [Concomitant]
     Active Substance: FLUTICASONE FUROATE\SALMETEROL XINAFOATE
     Dosage: 2 DF, BID
     Route: 055
  11. VENTOLIN [Concomitant]
     Active Substance: ALBUTEROL SULFATE
     Dosage: 2 DF, UNK
     Route: 055
  12. VICTOZA [Concomitant]
     Active Substance: LIRAGLUTIDE
     Route: 030
  13. DIGOXIN. [Suspect]
     Active Substance: DIGOXIN
     Indication: ATRIAL FIBRILLATION
     Dosage: 250 UG, QD
     Route: 048
     Dates: start: 2004, end: 20140916
  14. DIAZEPAM. [Concomitant]
     Active Substance: DIAZEPAM
     Dosage: 2MG AS NECESSARY (PRN) MAXIMAL TWICE DAILY
  15. FUROSEMIDE. [Concomitant]
     Active Substance: FUROSEMIDE
     Dosage: INCREASED BY CONSULTANT TO 80 MG BD FOR ONE MONTH THEN REDUCED BACK TO 120 MG DAILY AS BEFORE
  16. GLICLAZIDE [Concomitant]
     Active Substance: GLICLAZIDE
     Dosage: 80 MG, BID
  17. SPIRONOLACTONE. [Concomitant]
     Active Substance: SPIRONOLACTONE
     Dosage: 25 MG, QD

REACTIONS (9)
  - Vomiting [Unknown]
  - Hypotension [Unknown]
  - Nausea [Unknown]
  - Abdominal pain [Unknown]
  - International normalised ratio increased [Unknown]
  - Lethargy [Unknown]
  - Dehydration [Unknown]
  - Toxicity to various agents [Unknown]
  - Renal injury [Unknown]

NARRATIVE: CASE EVENT DATE: 20140904
